FAERS Safety Report 19399982 (Version 1)
Quarter: 2021Q2

REPORT INFORMATION
  Report Type: Spontaneous
  Country: GB (occurrence: GB)
  Receive Date: 20210610
  Receipt Date: 20210610
  Transmission Date: 20210717
  Serious: Yes (Other)
  Sender: FDA-Public Use
  Company Number: GB-SA-2021SA191729

PATIENT
  Age: 50 Year
  Sex: Female

DRUGS (1)
  1. KEVZARA [Suspect]
     Active Substance: SARILUMAB
     Indication: RHEUMATOID ARTHRITIS
     Dosage: 200 MG, QOW
     Route: 058
     Dates: start: 202012

REACTIONS (7)
  - Vertigo [Unknown]
  - Palpitations [Unknown]
  - Feeling of body temperature change [Unknown]
  - Loss of consciousness [Unknown]
  - Ocular discomfort [Unknown]
  - Malaise [Unknown]
  - Fear of injection [Unknown]
